FAERS Safety Report 4469965-6 (Version None)
Quarter: 2004Q3

REPORT INFORMATION
  Report Type: 
  Country: None (occurrence: None)
  Receive Date: 20040920
  Receipt Date: 20040608
  Transmission Date: 20050211
  Serious: No
  Sender: FDA-Public Use
  Company Number: A-US2004-06535

PATIENT
  Age: 51 Year
  Sex: Female

DRUGS (6)
  1. TRACLEER [Suspect]
     Indication: CREST SYNDROME
     Dosage: 62.5 MG, BID, ORAL
     Route: 048
     Dates: start: 20040514
  2. FOLIC ACID [Concomitant]
  3. COZAAR [Concomitant]
  4. ASPIRIN [Concomitant]
  5. LABETALOL HCL [Concomitant]
  6. TYLENOL W/ CODEINE [Concomitant]

REACTIONS (1)
  - PAIN IN EXTREMITY [None]
